FAERS Safety Report 24568861 (Version 1)
Quarter: 2024Q4

REPORT INFORMATION
  Report Type: Spontaneous
  Country: US (occurrence: US)
  Receive Date: 20241031
  Receipt Date: 20241031
  Transmission Date: 20250115
  Serious: No
  Sender: REGENERON
  Company Number: US-REGENERON PHARMACEUTICALS, INC.-2024-105643

PATIENT
  Age: 72 Year
  Sex: Male

DRUGS (1)
  1. LIBTAYO [Suspect]
     Active Substance: CEMIPLIMAB-RWLC
     Indication: Skin cancer
     Dosage: UNK
     Route: 042

REACTIONS (4)
  - Myalgia [Unknown]
  - Fatigue [Unknown]
  - Red blood cell count decreased [Recovering/Resolving]
  - Haemoglobin decreased [Unknown]
